FAERS Safety Report 8251813-X (Version None)
Quarter: 2012Q1

REPORT INFORMATION
  Report Type: 
  Country: None (occurrence: None)
  Receive Date: 20120321
  Receipt Date: 20101018
  Transmission Date: 20120608
  Serious: Yes (Other)
  Sender: FDA-Public Use
  Company Number: PHHY2010US63517

PATIENT
  Age: 85 Year
  Sex: Female

DRUGS (8)
  1. FUROSEMIDE [Concomitant]
  2. KLOR-CON [Concomitant]
  3. CHLORTHALIDONE [Concomitant]
  4. LASIX [Concomitant]
  5. VALTURNA [Suspect]
     Indication: HYPERTENSION
     Dosage: 1 TABLET (150/160 MG), 2 TABLET (150/160 MG)
     Dates: start: 20100826
  6. HYDRALAZINE HCL [Concomitant]
  7. CLONIDINE [Concomitant]
  8. ATENOLOL [Concomitant]

REACTIONS (1)
  - HYPERTENSION [None]
